FAERS Safety Report 9669611 (Version 1)
Quarter: 2013Q4

REPORT INFORMATION
  Report Type: Spontaneous
  Country: US (occurrence: None)
  Receive Date: 20131104
  Receipt Date: 20131104
  Transmission Date: 20140711
  Serious: Yes (Disabling)
  Sender: FDA-Public Use
  Company Number: None

PATIENT
  Age: 33 Year
  Sex: Male
  Weight: 86.18 kg

DRUGS (1)
  1. PROPECIA [Suspect]
     Indication: ALOPECIA
     Dosage: 1 PILL ONCE DAILY TAKEN BY MOUTH
     Route: 048
     Dates: start: 20100301, end: 20110717

REACTIONS (6)
  - Panic attack [None]
  - Libido decreased [None]
  - Weight decreased [None]
  - Genital hypoaesthesia [None]
  - Mental impairment [None]
  - Insomnia [None]
